FAERS Safety Report 7603534-1 (Version None)
Quarter: 2011Q3

REPORT INFORMATION
  Report Type: 
  Country: None (occurrence: None)
  Receive Date: 20110711
  Receipt Date: 20110711
  Transmission Date: 20111222
  Serious: Yes (Hospitalization)
  Sender: FDA-Public Use
  Company Number: None

PATIENT
  Sex: Female
  Weight: 37.19 kg

DRUGS (3)
  1. PACLITAXEL [Suspect]
     Dosage: 226 MG
  2. PEGFILGRASTIM (NEULASTA) [Suspect]
     Dosage: 6 MG
  3. CARBOPLATIN [Suspect]
     Dosage: 455 MG

REACTIONS (8)
  - ABDOMINAL ABSCESS [None]
  - APPENDICITIS [None]
  - INCISION SITE PAIN [None]
  - TACHYCARDIA [None]
  - THROMBOCYTOPENIA [None]
  - POST PROCEDURAL HAEMORRHAGE [None]
  - DEEP VEIN THROMBOSIS [None]
  - ANAEMIA [None]
